FAERS Safety Report 21322422 (Version 1)
Quarter: 2022Q3

REPORT INFORMATION
  Report Type: Spontaneous
  Country: FR (occurrence: FR)
  Receive Date: 20220912
  Receipt Date: 20220912
  Transmission Date: 20221027
  Serious: Yes (Other)
  Sender: FDA-Public Use
  Company Number: None

PATIENT
  Age: 35 Year
  Sex: Male

DRUGS (7)
  1. ZYPREXA [Suspect]
     Active Substance: OLANZAPINE
     Indication: Product used for unknown indication
     Dosage: UNK UNK, UNKNOWN (5 MG/J 2 SNIFFS/SEMAINE)
     Route: 048
     Dates: start: 2016
  2. ZYPREXA [Suspect]
     Active Substance: OLANZAPINE
     Dosage: UNK UNK, UNKNOWN (5 MG/J 2 SNIFFS/SEMAINE)
     Route: 045
  3. COCAINE [Suspect]
     Active Substance: COCAINE
     Indication: Product used for unknown indication
     Dosage: UNK UNK, UNKNOWN (5G/J)
     Route: 065
     Dates: start: 2002
  4. COCAINE [Suspect]
     Active Substance: COCAINE
     Dosage: UNK UNK, UNKNOWN (5G/J)
     Route: 042
  5. CANNABIS SATIVA SUBSP. INDICA TOP [Suspect]
     Active Substance: CANNABIS SATIVA SUBSP. INDICA TOP
     Indication: Product used for unknown indication
     Dosage: UNK UNK, UNKNOWN (QUOTIDIEN)
     Route: 065
     Dates: start: 2002
  6. VALIUM [Suspect]
     Active Substance: DIAZEPAM
     Indication: Product used for unknown indication
     Dosage: UNK UNK, UNKNOWN (30 MG/J 2 SNIFFS/SEMAINE)
     Route: 048
     Dates: start: 2017
  7. VALIUM [Suspect]
     Active Substance: DIAZEPAM
     Dosage: UNK UNK, UNKNOWN (30 MG/J 2 SNIFFS/SEMAINE)
     Route: 045

REACTIONS (3)
  - Drug dependence [Not Recovered/Not Resolved]
  - Drug use disorder [Not Recovered/Not Resolved]
  - Product use issue [Not Recovered/Not Resolved]
